FAERS Safety Report 17217553 (Version 1)
Quarter: 2019Q4

REPORT INFORMATION
  Report Type: Spontaneous
  Country: US (occurrence: US)
  Receive Date: 20191231
  Receipt Date: 20191231
  Transmission Date: 20200122
  Serious: No
  Sender: FDA-Public Use
  Company Number: US-SHIRE-US201944998

PATIENT
  Sex: Female

DRUGS (2)
  1. FRESHKOTE [Concomitant]
     Active Substance: POLYVINYL ALCOHOL\POVIDONE
     Indication: PRODUCT USED FOR UNKNOWN INDICATION
  2. XIIDRA [Suspect]
     Active Substance: LIFITEGRAST
     Indication: DRY EYE
     Dosage: 1 DROP, 2X/DAY:BID
     Route: 047
     Dates: start: 20190928

REACTIONS (5)
  - Inability to afford medication [Unknown]
  - Osteoarthritis [Unknown]
  - Depression [Not Recovered/Not Resolved]
  - Hypoacusis [Unknown]
  - Off label use [Not Recovered/Not Resolved]
